FAERS Safety Report 11219958 (Version 1)
Quarter: 2015Q2

REPORT INFORMATION
  Report Type: Spontaneous
  Country: US (occurrence: US)
  Receive Date: 20150625
  Receipt Date: 20150625
  Transmission Date: 20150821
  Serious: No
  Sender: FDA-Public Use
  Company Number: US-009507513-1506USA012814

PATIENT
  Age: 28 Year
  Sex: Female
  Weight: 68.27 kg

DRUGS (1)
  1. NEXPLANON [Suspect]
     Active Substance: ETONOGESTREL
     Dosage: DOSE/ FREQUENCY: 1 ROD (1 DF), 3 YEARS, IN THE RIGHT ARM
     Route: 059
     Dates: start: 201412

REACTIONS (1)
  - Acne [Unknown]

NARRATIVE: CASE EVENT DATE: 201501
